FAERS Safety Report 4788369-X (Version None)
Quarter: 2005Q4

REPORT INFORMATION
  Report Type: 
  Country: None (occurrence: None)
  Receive Date: 20051005
  Receipt Date: 20041214
  Transmission Date: 20060501
  Serious: Yes (Life-Threatening, Hospitalization)
  Sender: FDA-Public Use
  Company Number: PH-BRISTOL-MYERS SQUIBB COMPANY-12796801

PATIENT
  Age: 59 Year
  Sex: Female

DRUGS (2)
  1. IXABEPILONE [Suspect]
     Indication: BREAST CANCER
     Dosage: THERAPY INITIATED ON 27-JUL-04. PT REC'D 6 CYCLES SO FAR.
     Route: 042
     Dates: start: 20041122, end: 20041122
  2. CAPECITABINE [Suspect]
     Indication: BREAST CANCER
     Dosage: THERAPY INITIATED ON 27-JUL-04. PT REC'D 6 CYCLES SO FAR.
     Route: 048
     Dates: end: 20041206

REACTIONS (6)
  - ACUTE MYOCARDIAL INFARCTION [None]
  - INFECTION [None]
  - METASTASES TO CENTRAL NERVOUS SYSTEM [None]
  - MUSCLE SPASMS [None]
  - PYREXIA [None]
  - TRISMUS [None]
